FAERS Safety Report 10180514 (Version 2)
Quarter: 2014Q2

REPORT INFORMATION
  Report Type: Spontaneous
  Country: US (occurrence: US)
  Receive Date: 20140519
  Receipt Date: 20140519
  Transmission Date: 20141212
  Serious: No
  Sender: FDA-Public Use
  Company Number: US-AMGEN INC.-USASP2013083385

PATIENT
  Age: 74 Year
  Sex: Female
  Weight: 48.98 kg

DRUGS (8)
  1. PROLIA [Suspect]
     Indication: OSTEOPOROSIS POSTMENOPAUSAL
     Dosage: 60 MG, Q6MO
     Route: 058
     Dates: start: 20130917
  2. PRAVASTATIN [Concomitant]
     Indication: HYPERLIPIDAEMIA
     Dosage: 20 MG, QHS
     Route: 048
  3. VITAMINS                           /00067501/ [Concomitant]
     Dosage: UNK
     Route: 065
  4. CALCIUM [Concomitant]
     Dosage: UNK
     Route: 065
  5. VITAMIN D                          /00107901/ [Concomitant]
     Dosage: UNK
     Route: 065
  6. OMEPRAZOL                          /00661201/ [Concomitant]
     Indication: GASTROOESOPHAGEAL REFLUX DISEASE
     Dosage: 40 MG, QD
     Route: 048
  7. ADVAIR [Concomitant]
     Indication: EMPHYSEMA
     Dosage: UNK UNK, BID 250/50 INH
     Route: 065
  8. COMBIVENT [Concomitant]
     Indication: EMPHYSEMA
     Dosage: UNK 18/ 103 Q10 INH
     Route: 065

REACTIONS (10)
  - Sinusitis [Recovered/Resolved]
  - Muscle spasms [Recovered/Resolved]
  - Oropharyngeal pain [Unknown]
  - Ear discomfort [Unknown]
  - Epistaxis [Not Recovered/Not Resolved]
  - Headache [Not Recovered/Not Resolved]
  - Upper-airway cough syndrome [Not Recovered/Not Resolved]
  - Asthenia [Not Recovered/Not Resolved]
  - Swelling face [Recovered/Resolved]
  - Rash [Recovered/Resolved]
